FAERS Safety Report 7631097-3 (Version None)
Quarter: 2011Q3

REPORT INFORMATION
  Report Type: 
  Country: None (occurrence: None)
  Receive Date: 20110725
  Receipt Date: 20110411
  Transmission Date: 20111222
  Serious: No
  Sender: FDA-Public Use
  Company Number: US-BAYER-201036085NA

PATIENT
  Age: 47 Year
  Sex: Male

DRUGS (3)
  1. BETASERON [Suspect]
     Route: 058
  2. TYSABRI [Concomitant]
     Dates: start: 20070101
  3. BETASERON [Suspect]
     Indication: PRODUCT USED FOR UNKNOWN INDICATION
     Route: 058

REACTIONS (1)
  - PAIN [None]
